FAERS Safety Report 5262902-6 (Version None)
Quarter: 2007Q1

REPORT INFORMATION
  Report Type: 
  Country: None (occurrence: None)
  Receive Date: 20070308
  Receipt Date: 20070222
  Transmission Date: 20070707
  Serious: No
  Sender: FDA-Public Use
  Company Number: E2020-00998-SPO-GB

PATIENT
  Age: 87 Year
  Sex: Male

DRUGS (3)
  1. ARICEPT [Suspect]
     Indication: DEMENTIA
     Dosage: 10 MG, 1 IN 1 D, ORAL
     Route: 048
     Dates: start: 20040102, end: 20060106
  2. CO-DYDRAMOL (PARAMOL-118) [Concomitant]
  3. ACETAMINOPHEN [Concomitant]

REACTIONS (3)
  - ARRHYTHMIA [None]
  - SYNCOPE [None]
  - VENTRICULAR TACHYCARDIA [None]
